FAERS Safety Report 7496485-7 (Version None)
Quarter: 2011Q2

REPORT INFORMATION
  Report Type: 
  Country: None (occurrence: None)
  Receive Date: 20110523
  Receipt Date: 20110517
  Transmission Date: 20111010
  Serious: Yes (Other)
  Sender: FDA-Public Use
  Company Number: B0720382A

PATIENT
  Sex: Female

DRUGS (1)
  1. NICOTINE [Suspect]
     Route: 065

REACTIONS (2)
  - RASH [None]
  - SYNCOPE [None]
